FAERS Safety Report 4503889-0 (Version None)
Quarter: 2004Q4

REPORT INFORMATION
  Report Type: 
  Country: None (occurrence: None)
  Receive Date: 20040928
  Receipt Date: 20040615
  Transmission Date: 20050328
  Serious: No
  Sender: FDA-Public Use
  Company Number: 04P-163-0263824-00

PATIENT
  Age: 69 Year
  Sex: Male
  Weight: 65.318 kg

DRUGS (9)
  1. HUMIRA [Suspect]
     Indication: RHEUMATOID ARTHRITIS
     Dosage: SEE IMAGE
     Route: 058
     Dates: start: 20031117, end: 20040105
  2. HUMIRA [Suspect]
     Indication: RHEUMATOID ARTHRITIS
     Dosage: SEE IMAGE
     Route: 058
     Dates: start: 20040206, end: 20040327
  3. HUMIRA [Suspect]
     Indication: RHEUMATOID ARTHRITIS
     Dosage: SEE IMAGE
     Route: 058
     Dates: start: 20040419
  4. . [Concomitant]
  5. TRIAMTERENE [Concomitant]
  6. METOPROLOL [Concomitant]
  7. ACETYLSALICYLIC ACID [Concomitant]
  8. LEFLUNOMIDE [Concomitant]
  9. PREDNISONE [Concomitant]

REACTIONS (3)
  - DRUG INEFFECTIVE [None]
  - PROSTATITIS [None]
  - URINARY TRACT INFECTION [None]
